FAERS Safety Report 7956330-X (Version None)
Quarter: 2011Q4

REPORT INFORMATION
  Report Type: 
  Country: None (occurrence: None)
  Receive Date: 20111125
  Receipt Date: 20111110
  Transmission Date: 20120403
  Serious: Yes (Other)
  Sender: FDA-Public Use
  Company Number: 2011PROUSA00757

PATIENT
  Age: 66 Year
  Sex: Male

DRUGS (3)
  1. PROVENGE [Suspect]
     Indication: PROSTATE CANCER METASTATIC
     Dosage: 250 ML, SINGLE, INTRAVENOUS
     Route: 042
     Dates: start: 20111028, end: 20111028
  2. PROVENGE [Suspect]
     Indication: PROSTATE CANCER METASTATIC
     Dosage: 250 ML, SINGLE, INTRAVENOUS
     Route: 042
     Dates: start: 20111013, end: 20111013
  3. PROVENGE [Suspect]

REACTIONS (4)
  - DYSPNOEA [None]
  - CARBON MONOXIDE DIFFUSING CAPACITY DECREASED [None]
  - FATIGUE [None]
  - FORCED EXPIRATORY VOLUME DECREASED [None]
